FAERS Safety Report 5796121-1 (Version None)
Quarter: 2008Q3

REPORT INFORMATION
  Report Type: 
  Country: None (occurrence: None)
  Receive Date: 20080701
  Receipt Date: 20080626
  Transmission Date: 20090109
  Serious: Yes (Other)
  Sender: FDA-Public Use
  Company Number: US-TEVA-173473USA

PATIENT
  Sex: Female

DRUGS (1)
  1. GLIBENCLAMIDE 1.25 MG, 2.5 MG + 5 MG TABLETS [Suspect]
     Route: 048

REACTIONS (1)
  - TARDIVE DYSKINESIA [None]
